FAERS Safety Report 6131862-8 (Version None)
Quarter: 2009Q1

REPORT INFORMATION
  Report Type: 
  Country: None (occurrence: None)
  Receive Date: 20090323
  Receipt Date: 20090305
  Transmission Date: 20090719
  Serious: Yes (Other)
  Sender: FDA-Public Use
  Company Number: APP200900123

PATIENT
  Age: 15 Year
  Sex: Female

DRUGS (4)
  1. ASTRAMORPH PF [Suspect]
     Indication: STEM CELL TRANSPLANT
     Dosage: 20 UG/KG, 1 IN 1 HR
  2. DIMETHYLSULFOXIDE (DIMETHYL SULFOXIDE) [Suspect]
     Indication: STEM CELL TRANSPLANT
     Dosage: 1304 MG/KG
  3. THIOTEPA [Concomitant]
  4. MELPHALAN (MELPHALAN) [Concomitant]

REACTIONS (4)
  - DRUG INTERACTION [None]
  - OXYGEN SATURATION DECREASED [None]
  - RESPIRATORY DEPRESSION [None]
  - SOMNOLENCE [None]
